FAERS Safety Report 5660315-6 (Version None)
Quarter: 2008Q1

REPORT INFORMATION
  Report Type: 
  Country: None (occurrence: None)
  Receive Date: 20080214
  Receipt Date: 20071213
  Transmission Date: 20080703
  Serious: Yes (Other)
  Sender: FDA-Public Use
  Company Number: WAES 0712USA05366

PATIENT
  Age: 46 Year
  Sex: Female
  Weight: 70.7611 kg

DRUGS (4)
  1. ISENTRESS [Suspect]
     Indication: HIV INFECTION
     Dosage: PO
     Route: 048
     Dates: start: 20071105, end: 20071114
  2. ISENTRESS [Suspect]
     Indication: EXPOSURE TO COMMUNICABLE DISEASE
     Dosage: PO
     Route: 048
     Dates: start: 20071119
  3. DARUNAVIR [Concomitant]
  4. EMTRICITABINE (+) TENOFOVIR DISOLI [Concomitant]

REACTIONS (1)
  - RASH GENERALISED [None]
